FAERS Safety Report 11062102 (Version 2)
Quarter: 2015Q2

REPORT INFORMATION
  Report Type: Report from Study
  Country: GB (occurrence: GB)
  Receive Date: 20150424
  Receipt Date: 20150514
  Transmission Date: 20150821
  Serious: Yes (Hospitalization, Other)
  Sender: FDA-Public Use
  Company Number: GB-JNJFOC-20150209741

PATIENT
  Age: 52 Year
  Sex: Male
  Weight: 92 kg

DRUGS (10)
  1. DIPROBASE [Concomitant]
     Active Substance: CHLOROCRESOL
     Indication: PSORIASIS
     Route: 065
     Dates: start: 20081125, end: 20150218
  2. CLOPIDOGREL [Concomitant]
     Active Substance: CLOPIDOGREL BISULFATE
     Route: 065
     Dates: start: 20130115, end: 20150409
  3. TADALAFIL [Concomitant]
     Active Substance: TADALAFIL
     Route: 065
     Dates: start: 20141015, end: 20141126
  4. COCODAMOL [Concomitant]
     Active Substance: ACETAMINOPHEN\CODEINE PHOSPHATE
     Dosage: 500 MG, 1-2 4 TIMES
     Route: 065
     Dates: start: 20141015, end: 20150218
  5. LANSOPRAZOLE. [Concomitant]
     Active Substance: LANSOPRAZOLE
     Indication: OTITIS EXTERNA
     Route: 065
     Dates: start: 20100511, end: 20150120
  6. STELARA [Suspect]
     Active Substance: USTEKINUMAB
     Indication: PSORIASIS
     Route: 058
     Dates: start: 20140502
  7. LISINOPRIL. [Concomitant]
     Active Substance: LISINOPRIL
     Route: 065
     Dates: start: 20110831, end: 20150409
  8. BISOPROLOL [Concomitant]
     Active Substance: BISOPROLOL
     Route: 065
     Dates: start: 20130115, end: 20150409
  9. ACITRETIN. [Concomitant]
     Active Substance: ACITRETIN
     Route: 065
  10. BETAMETHASONE DIPROPIONATE. [Concomitant]
     Active Substance: BETAMETHASONE DIPROPIONATE
     Indication: PSORIASIS
     Dosage: APPLY 1-2 TIMES
     Route: 065
     Dates: start: 20140224, end: 20140711

REACTIONS (6)
  - Lower respiratory tract infection [Unknown]
  - Lobar pneumonia [Recovered/Resolved]
  - Fatigue [Unknown]
  - Influenza [Unknown]
  - Surgery [Unknown]
  - Night sweats [Unknown]

NARRATIVE: CASE EVENT DATE: 20150301
